FAERS Safety Report 13761733 (Version 2)
Quarter: 2017Q3

REPORT INFORMATION
  Report Type: Spontaneous
  Country: US (occurrence: US)
  Receive Date: 20170718
  Receipt Date: 20170818
  Transmission Date: 20171127
  Serious: Yes (Hospitalization, Other)
  Sender: FDA-Public Use
  Company Number: US-AUROBINDO-AUR-APL-2017-37059

PATIENT
  Age: 63 Year
  Sex: Female

DRUGS (1)
  1. METHYLPREDNISOLONE. [Suspect]
     Active Substance: METHYLPREDNISOLONE
     Indication: LUMBAR PUNCTURE
     Route: 042

REACTIONS (5)
  - Gait disturbance [Unknown]
  - Paraparesis [Unknown]
  - Sensory loss [Unknown]
  - Bladder dysfunction [Unknown]
  - Arteriovenous fistula [Unknown]
